FAERS Safety Report 17670949 (Version 4)
Quarter: 2021Q1

REPORT INFORMATION
  Report Type: Spontaneous
  Country: TR (occurrence: TR)
  Receive Date: 20200415
  Receipt Date: 20210208
  Transmission Date: 20210419
  Serious: Yes (Hospitalization)
  Sender: FDA-Public Use
  Company Number: TR-PFIZER INC-2020152181

PATIENT
  Age: 53 Year
  Sex: Female

DRUGS (4)
  1. PREGABALIN. [Suspect]
     Active Substance: PREGABALIN
     Indication: PAIN
     Dosage: 300 MG, DAILY
  2. IRBESARTAN. [Concomitant]
     Active Substance: IRBESARTAN
     Dosage: 300 MG, DAILY
  3. PREGABALIN. [Suspect]
     Active Substance: PREGABALIN
     Indication: FIBROMYALGIA
     Dosage: 150 MG, DAILY
  4. THIAZIDE [Concomitant]
     Active Substance: UNSPECIFIED INGREDIENT
     Dosage: 12.5 MG, DAILY

REACTIONS (1)
  - Parkinsonism [Recovered/Resolved]
